FAERS Safety Report 7292475-8 (Version None)
Quarter: 2011Q1

REPORT INFORMATION
  Report Type: 
  Country: None (occurrence: None)
  Receive Date: 20110215
  Receipt Date: 20110212
  Transmission Date: 20110831
  Serious: No
  Sender: FDA-Public Use
  Company Number: US-PFIZER INC-2007090529

PATIENT
  Sex: Male
  Weight: 81.633 kg

DRUGS (5)
  1. CHANTIX [Suspect]
     Dosage: 1 MG, 2X/DAY
     Route: 048
  2. CHANTIX [Suspect]
     Indication: SMOKING CESSATION THERAPY
     Dosage: 0.5 MG, 2X/DAY
     Dates: start: 20071001
  3. VITAMINS NOS [Concomitant]
     Dosage: UNK
  4. ACIPHEX [Concomitant]
     Indication: HIATUS HERNIA
     Dosage: UNK
  5. CHANTIX [Suspect]
     Dosage: 0.5 MG, 1X/DAY
     Route: 048
     Dates: start: 20110201

REACTIONS (5)
  - TREMOR [None]
  - PAIN IN EXTREMITY [None]
  - BACK PAIN [None]
  - NECK PAIN [None]
  - NERVOUSNESS [None]
